FAERS Safety Report 5055540-1 (Version None)
Quarter: 2006Q3

REPORT INFORMATION
  Report Type: 
  Country: None (occurrence: None)
  Receive Date: 20060717
  Receipt Date: 20060717
  Transmission Date: 20061208
  Serious: Yes (Hospitalization)
  Sender: FDA-Public Use
  Company Number: None

PATIENT
  Age: 18 Year
  Sex: Female
  Weight: 76.6579 kg

DRUGS (1)
  1. LITHIUM CARBONATE  300MG   ROXAANE [Suspect]
     Indication: BIPOLAR I DISORDER
     Dosage: 300MG  TWICE DAILY   PO
     Route: 048
     Dates: start: 20050801, end: 20060130

REACTIONS (4)
  - ANAEMIA [None]
  - AUTOIMMUNE THYROIDITIS [None]
  - GOITRE [None]
  - THERAPEUTIC AGENT TOXICITY [None]
